FAERS Safety Report 7444294-7 (Version None)
Quarter: 2011Q2

REPORT INFORMATION
  Report Type: 
  Country: None (occurrence: None)
  Receive Date: 20110426
  Receipt Date: 20110426
  Transmission Date: 20111010
  Serious: Yes (Other)
  Sender: FDA-Public Use
  Company Number: None

PATIENT
  Sex: Female
  Weight: 72.7 kg

DRUGS (1)
  1. LAMOTRIGINE [Suspect]
     Dosage: 100MG BID PO
     Route: 048
     Dates: start: 20110331, end: 20110425

REACTIONS (5)
  - DYSPNOEA [None]
  - PRURITUS [None]
  - SWELLING FACE [None]
  - RASH MACULAR [None]
  - SWOLLEN TONGUE [None]
